FAERS Safety Report 19963042 (Version 1)
Quarter: 2021Q4

REPORT INFORMATION
  Report Type: Spontaneous
  Country: US (occurrence: US)
  Receive Date: 20211015
  Receipt Date: 20211015
  Transmission Date: 20220304
  Serious: Yes (Other)
  Sender: FDA-Public Use
  Company Number: None

PATIENT
  Age: 55 Year
  Sex: Female
  Weight: 55.35 kg

DRUGS (1)
  1. HYDROCORTISONE [Suspect]
     Active Substance: HYDROCORTISONE
     Indication: Addison^s disease
     Dosage: ?          QUANTITY:1 TABLET(S);
     Route: 048

REACTIONS (3)
  - Adrenocortical insufficiency acute [None]
  - Manufacturing materials issue [None]
  - Inhibitory drug interaction [None]

NARRATIVE: CASE EVENT DATE: 20211015
